FAERS Safety Report 7088766-6 (Version None)
Quarter: 2010Q4

REPORT INFORMATION
  Report Type: 
  Country: None (occurrence: None)
  Receive Date: 20101108
  Receipt Date: 20101025
  Transmission Date: 20110411
  Serious: Yes (Other)
  Sender: FDA-Public Use
  Company Number: PHHY2010JP63282

PATIENT
  Age: 51 Year

DRUGS (1)
  1. GLEEVEC [Suspect]
     Indication: CHRONIC MYELOID LEUKAEMIA
     Dosage: 400 MG, QD
     Route: 048
     Dates: start: 20091001, end: 20091201

REACTIONS (3)
  - LIVER DISORDER [None]
  - MYALGIA [None]
  - NATURAL KILLER CELL COUNT INCREASED [None]
